FAERS Safety Report 20364119 (Version 1)
Quarter: 2022Q1

REPORT INFORMATION
  Report Type: Spontaneous
  Country: CN (occurrence: CN)
  Receive Date: 20220121
  Receipt Date: 20220121
  Transmission Date: 20220423
  Serious: Yes (Other)
  Sender: FDA-Public Use
  Company Number: CN-PFIZER INC-202200034712

PATIENT
  Age: 58 Year
  Sex: Female

DRUGS (4)
  1. AXITINIB [Suspect]
     Active Substance: AXITINIB
     Indication: Renal cancer metastatic
     Dosage: 5 MG, 2X/DAY
     Dates: start: 202010, end: 202012
  2. AXITINIB [Suspect]
     Active Substance: AXITINIB
     Dosage: 5 MG, DAILY
     Dates: start: 202012, end: 202012
  3. AXITINIB [Suspect]
     Active Substance: AXITINIB
     Dosage: 2.5 MG, DAILY
     Dates: start: 202012
  4. SINTILIMAB [Concomitant]
     Active Substance: SINTILIMAB
     Indication: Renal cancer metastatic
     Dosage: 200 MG, EVERY 3 WEEKS
     Dates: start: 20200726

REACTIONS (3)
  - Iridocyclitis [Recovered/Resolved]
  - Off label use [Unknown]
  - Off label use [Unknown]

NARRATIVE: CASE EVENT DATE: 20201001
